FAERS Safety Report 13215719 (Version 3)
Quarter: 2017Q2

REPORT INFORMATION
  Report Type: Spontaneous
  Country: US (occurrence: US)
  Receive Date: 20170209
  Receipt Date: 20170403
  Transmission Date: 20170830
  Serious: No
  Sender: FDA-Public Use
  Company Number: US-BIOGEN-2017BI00352664

PATIENT
  Sex: Female

DRUGS (2)
  1. PLEGRIDY [Suspect]
     Active Substance: PEGINTERFERON BETA-1A
     Indication: MULTIPLE SCLEROSIS
     Route: 065
  2. RITALIN [Concomitant]
     Active Substance: METHYLPHENIDATE HYDROCHLORIDE
     Indication: PRODUCT USED FOR UNKNOWN INDICATION
     Dosage: 2 IN AM AND 1 IN PM FOR 30 DAYS
     Route: 048

REACTIONS (10)
  - Treatment failure [Unknown]
  - Mobility decreased [Unknown]
  - Peripheral swelling [Unknown]
  - Paraesthesia [Unknown]
  - Cerebral disorder [Unknown]
  - Fatigue [Unknown]
  - Gait disturbance [Unknown]
  - Hypersensitivity [Unknown]
  - Drug intolerance [Unknown]
  - Visual impairment [Unknown]
